FAERS Safety Report 9304166 (Version 2)
Quarter: 2013Q2

REPORT INFORMATION
  Report Type: Spontaneous
  Country: AU (occurrence: AU)
  Receive Date: 20130522
  Receipt Date: 20130619
  Transmission Date: 20140414
  Serious: Yes (Death, Hospitalization, Other)
  Sender: FDA-Public Use
  Company Number: AU-B.I. PHARMACEUTICALS,INC./RIDGEFIELD-2013-AU-00611AU

PATIENT
  Age: 87 Year
  Sex: Female

DRUGS (16)
  1. PRADAXA [Suspect]
     Indication: CEREBROVASCULAR ACCIDENT PROPHYLAXIS
     Dosage: 220 MG
     Dates: start: 20110617, end: 20130418
  2. PRADAXA [Suspect]
     Indication: ATRIAL FIBRILLATION
  3. AMIODARONE [Concomitant]
     Dosage: 200 MG
  4. ASPIRIN [Concomitant]
     Dosage: 100 MG
  5. BICOR [Concomitant]
     Dosage: 10 MG
  6. LASIX [Concomitant]
     Dosage: 80 MG
  7. LIPITOR [Concomitant]
     Dosage: 20 MG
  8. NITROLINGUAL [Concomitant]
     Dosage: 400 MC/DOSE SPRAY  1-2 PRN
  9. NORMISON [Concomitant]
     Dosage: 10 MG
  10. NORFLOXACIN [Concomitant]
     Dosage: 800 MG
     Dates: start: 20130330, end: 201304
  11. OSTELIN [Concomitant]
     Dosage: 1000 U
  12. PANAMAX [Concomitant]
     Dosage: 4000 MG
  13. SOMAC [Concomitant]
     Dosage: 20 MG
     Dates: end: 20130418
  14. SPIRACTIN [Concomitant]
     Dosage: 25 MG
     Dates: end: 20130418
  15. SLOW K [Concomitant]
     Dosage: 600 MG
     Dates: end: 20130418
  16. NORVASC [Concomitant]

REACTIONS (24)
  - Streptococcal sepsis [Fatal]
  - Cardiac failure congestive [Unknown]
  - Cardiac failure [Unknown]
  - Atrial fibrillation [Unknown]
  - Fluid overload [Unknown]
  - Hyperkalaemia [Unknown]
  - Subacute endocarditis [Unknown]
  - Skin ulcer [Unknown]
  - Renal impairment [Unknown]
  - Hypercalcaemia [Unknown]
  - Urosepsis [Unknown]
  - Haematuria [Unknown]
  - Ecchymosis [Unknown]
  - Liver function test abnormal [Unknown]
  - Cyanosis [Unknown]
  - Peripheral coldness [Unknown]
  - Oedema peripheral [Unknown]
  - Dyspnoea [Unknown]
  - Lethargy [Unknown]
  - Malaise [Unknown]
  - Asthenia [Unknown]
  - Vomiting [Unknown]
  - Oedema peripheral [Unknown]
  - Diabetes mellitus [Unknown]
